FAERS Safety Report 15386924 (Version 1)
Quarter: 2018Q3

REPORT INFORMATION
  Report Type: Spontaneous
  Country: AU (occurrence: AU)
  Receive Date: 20180914
  Receipt Date: 20180914
  Transmission Date: 20181010
  Serious: Yes (Life-Threatening, Other)
  Sender: FDA-Public Use
  Company Number: AU-BAXTER-2018BAX023371

PATIENT
  Age: 57 Year
  Sex: Male

DRUGS (9)
  1. SODIUM CHLORIDE (VIAFLO) 1000ML [Suspect]
     Active Substance: SODIUM CHLORIDE
     Indication: MEDICATION DILUTION
     Dosage: PCA INTRAVENOUS PATIENT HAD 35 MG OVER 5 HOURS?MASTER CODE: MSL. 160?MORPHINE SYRINGE (60MG/60ML IN
     Route: 042
     Dates: start: 20180822, end: 20180822
  2. ASPIRIN. [Concomitant]
     Active Substance: ASPIRIN
     Indication: CAROTID ARTERY STENOSIS
     Route: 048
     Dates: start: 2013
  3. CYCLIZINE [Suspect]
     Active Substance: CYCLIZINE
     Indication: NAUSEA
     Route: 042
     Dates: start: 20180822, end: 20180822
  4. CYCLIZINE [Suspect]
     Active Substance: CYCLIZINE
     Indication: VOMITING
  5. ONDANSETRON?CLARIS [Suspect]
     Active Substance: ONDANSETRON
     Indication: VOMITING
  6. MORPHINE [Suspect]
     Active Substance: MORPHINE
     Indication: PROCEDURAL PAIN
     Dosage: PCA INTRAVENOUS PATIENT HAD 35 MG OVER 5 HOURS?MASTER CODE: MSL. 160?MORPHINE SYRINGE (60MG/60ML IN
     Route: 042
     Dates: start: 20180822, end: 20180822
  7. TAMSULOSIN [Concomitant]
     Active Substance: TAMSULOSIN
     Indication: BENIGN PROSTATIC HYPERPLASIA
     Dosage: THERAPY DATES: UNKNOWN ? LONG TERM
     Route: 048
  8. PARACETAMOL [Concomitant]
     Active Substance: ACETAMINOPHEN
     Indication: ANALGESIC THERAPY
     Dosage: THERAPY DATES: UNKNOWN ? LONG TERM
     Route: 048
  9. ONDANSETRON?CLARIS [Suspect]
     Active Substance: ONDANSETRON
     Indication: NAUSEA
     Dosage: 4 MG PRN D
     Route: 042
     Dates: start: 20180822, end: 20180827

REACTIONS (2)
  - Unresponsive to stimuli [Recovered/Resolved]
  - Respiratory acidosis [Recovered/Resolved]

NARRATIVE: CASE EVENT DATE: 20180822
